FAERS Safety Report 13179596 (Version 3)
Quarter: 2017Q1

REPORT INFORMATION
  Report Type: Spontaneous
  Country: JP (occurrence: JP)
  Receive Date: 20170202
  Receipt Date: 20170331
  Transmission Date: 20170428
  Serious: Yes (Death, Hospitalization)
  Sender: FDA-Public Use
  Company Number: JP-ELI_LILLY_AND_COMPANY-JP201701010826

PATIENT
  Age: 78 Year
  Sex: Male
  Weight: 47 kg

DRUGS (7)
  1. FRESMIN S                          /00091803/ [Concomitant]
     Dosage: UNK
     Route: 030
     Dates: start: 20161018, end: 20161018
  2. CARBOPLATIN. [Concomitant]
     Active Substance: CARBOPLATIN
     Indication: LUNG ADENOCARCINOMA STAGE IV
     Dosage: 350 MG, OTHER
     Route: 042
     Dates: start: 20160711, end: 20161207
  3. PANVITAN                           /05664401/ [Concomitant]
     Dosage: UNK
     Route: 048
     Dates: start: 20160702, end: 20170127
  4. FRESMIN S                          /00091803/ [Concomitant]
     Dosage: UNK
     Route: 030
     Dates: start: 20160823, end: 20160823
  5. ALIMTA [Suspect]
     Active Substance: PEMETREXED DISODIUM
     Indication: LUNG ADENOCARCINOMA STAGE IV
     Dosage: 700 MG, OTHER
     Route: 042
     Dates: start: 20160711, end: 20170110
  6. FRESMIN S                          /00091803/ [Concomitant]
     Dosage: UNK
     Route: 030
     Dates: start: 20160702, end: 20160702
  7. FRESMIN S                          /00091803/ [Concomitant]
     Dosage: UNK
     Route: 030
     Dates: start: 20161221

REACTIONS (4)
  - Respiratory failure [Fatal]
  - Decreased appetite [Unknown]
  - Lung disorder [Fatal]
  - Cell marker increased [Unknown]

NARRATIVE: CASE EVENT DATE: 20161221
